FAERS Safety Report 11002043 (Version 1)
Quarter: 2015Q2

REPORT INFORMATION
  Report Type: Spontaneous
  Country: US (occurrence: US)
  Receive Date: 20150408
  Receipt Date: 20150408
  Transmission Date: 20150821
  Serious: No
  Sender: FDA-Public Use
  Company Number: US-ASTELLAS-2015US001208

PATIENT
  Sex: Female

DRUGS (1)
  1. MYRBETRIQ [Suspect]
     Active Substance: MIRABEGRON
     Indication: POST PROCEDURAL COMPLICATION
     Route: 065
     Dates: start: 20141223

REACTIONS (2)
  - Intentional product misuse [Unknown]
  - Off label use [Unknown]
